FAERS Safety Report 24378665 (Version 1)
Quarter: 2024Q3

REPORT INFORMATION
  Report Type: Spontaneous
  Country: DK (occurrence: DK)
  Receive Date: 20240930
  Receipt Date: 20240930
  Transmission Date: 20241017
  Serious: Yes (Death, Other)
  Sender: ROCHE
  Company Number: None

PATIENT
  Age: 86 Year
  Sex: Female
  Weight: 62 kg

DRUGS (3)
  1. ALTEPLASE [Suspect]
     Active Substance: ALTEPLASE
     Indication: Thrombosis
     Dosage: 0.09 MG/KG. A BOLUS WAS GIVEN AT 9.44 PM.
     Route: 042
  2. ATORVASTATIN [Concomitant]
     Active Substance: ATORVASTATIN
     Indication: Hypercholesterolaemia
     Dosage: FREQUENCY TIME 1 DAY
     Dates: start: 20240311
  3. AMLODIPINE BESYLATE [Concomitant]
     Active Substance: AMLODIPINE BESYLATE
     Indication: Hypertension
     Dosage: FREQUENCY TIME 1 DAY
     Dates: start: 20240308

REACTIONS (7)
  - Cerebral haemorrhage [Fatal]
  - Multiple organ dysfunction syndrome [Fatal]
  - Respiratory failure [Fatal]
  - Cardiovascular disorder [Fatal]
  - Depressed level of consciousness [Unknown]
  - Pneumonia aspiration [Unknown]
  - Dysphagia [Unknown]

NARRATIVE: CASE EVENT DATE: 20240101
